FAERS Safety Report 21079768 (Version 2)
Quarter: 2022Q3

REPORT INFORMATION
  Report Type: Report from Study
  Country: IT (occurrence: IT)
  Receive Date: 20220714
  Receipt Date: 20220722
  Transmission Date: 20221026
  Serious: Yes (Other)
  Sender: FDA-Public Use
  Company Number: IT-UCBSA-2022038402

PATIENT
  Age: 48 Year
  Sex: Male

DRUGS (5)
  1. VIMPAT [Suspect]
     Active Substance: LACOSAMIDE
     Indication: Epilepsy
     Dosage: 50 MILLIGRAM, 2X/DAY (BID)
     Route: 048
     Dates: start: 2022, end: 2022
  2. VIMPAT [Suspect]
     Active Substance: LACOSAMIDE
     Dosage: 50 MILLIGRAM IN MORNING, ONCE DAILY (QD)
     Route: 048
     Dates: start: 2022, end: 2022
  3. VIMPAT [Suspect]
     Active Substance: LACOSAMIDE
     Dosage: 50 MILLIGRAM IN EVENING, ONCE DAILY (QD)
     Route: 048
     Dates: start: 2022, end: 202206
  4. IBUPROFEN SODIUM [Concomitant]
     Active Substance: IBUPROFEN SODIUM
     Indication: Product used for unknown indication
     Dosage: UNK
  5. FYCOMPA [Concomitant]
     Active Substance: PERAMPANEL
     Indication: Epilepsy

REACTIONS (4)
  - Muscle spasms [Recovering/Resolving]
  - COVID-19 [Recovering/Resolving]
  - Underdose [Unknown]
  - Product use issue [Unknown]

NARRATIVE: CASE EVENT DATE: 20220101
